FAERS Safety Report 6140421-2 (Version None)
Quarter: 2009Q2

REPORT INFORMATION
  Report Type: 
  Country: None (occurrence: None)
  Receive Date: 20090401
  Receipt Date: 20090324
  Transmission Date: 20091009
  Serious: Yes (Hospitalization)
  Sender: FDA-Public Use
  Company Number: CA-ABBOTT-09P-028-0503409-00

PATIENT
  Sex: Female
  Weight: 41 kg

DRUGS (2)
  1. HUMIRA [Suspect]
     Indication: CROHN'S DISEASE
     Route: 058
     Dates: start: 20081015, end: 20090202
  2. IMODIUM [Concomitant]
     Indication: DIARRHOEA
     Dates: start: 20081105, end: 20081208

REACTIONS (3)
  - COUGH [None]
  - CROHN'S DISEASE [None]
  - PYREXIA [None]
